FAERS Safety Report 23117174 (Version 1)
Quarter: 2023Q4

REPORT INFORMATION
  Report Type: Spontaneous
  Country: PL (occurrence: PL)
  Receive Date: 20231027
  Receipt Date: 20231027
  Transmission Date: 20240110
  Serious: Yes (Death, Hospitalization)
  Sender: FDA-Public Use
  Company Number: PL-002147023-NVSC2023PL225091

PATIENT

DRUGS (1)
  1. RUXOLITINIB [Suspect]
     Active Substance: RUXOLITINIB
     Indication: Myelofibrosis
     Dosage: 10 MG, BID (2X10MG)
     Route: 065
     Dates: start: 202304, end: 202309

REACTIONS (4)
  - Anaemia [Recovering/Resolving]
  - Pneumonia cytomegaloviral [Unknown]
  - Death [Fatal]
  - Splenomegaly [Unknown]

NARRATIVE: CASE EVENT DATE: 20230601
